FAERS Safety Report 5196655-7 (Version None)
Quarter: 2006Q4

REPORT INFORMATION
  Report Type: 
  Country: None (occurrence: None)
  Receive Date: 20061227
  Receipt Date: 20061211
  Transmission Date: 20070319
  Serious: Yes (Other)
  Sender: FDA-Public Use
  Company Number: 2005092344

PATIENT
  Sex: Male

DRUGS (9)
  1. NEURONTIN [Suspect]
     Indication: DEPRESSION
     Dosage: (300 MG)
     Dates: start: 20030601, end: 20031201
  2. CARBON MONOXIDE (CARBON MONOXIDE) [Suspect]
     Indication: SUICIDE ATTEMPT
     Dates: start: 20031201
  3. COZAAR [Concomitant]
  4. LORAZEPAM [Concomitant]
  5. PAXIL [Concomitant]
  6. CLONAZEPAM [Concomitant]
  7. SEROQUEL [Concomitant]
  8. AMBIEN [Concomitant]
  9. GABITRIL [Concomitant]

REACTIONS (13)
  - AGGRESSION [None]
  - AMNESIA [None]
  - CARBON MONOXIDE POISONING [None]
  - DEPRESSION [None]
  - DRUG INEFFECTIVE [None]
  - HOSTILITY [None]
  - HYPERTENSION [None]
  - IMPULSIVE BEHAVIOUR [None]
  - INSOMNIA [None]
  - INTENTIONAL SELF-INJURY [None]
  - IRRITABILITY [None]
  - POLYTRAUMATISM [None]
  - SUICIDE ATTEMPT [None]
